FAERS Safety Report 13906767 (Version 1)
Quarter: 2017Q3

REPORT INFORMATION
  Report Type: Spontaneous
  Country: US (occurrence: US)
  Receive Date: 20170825
  Receipt Date: 20170825
  Transmission Date: 20171127
  Serious: Yes (Hospitalization, Disabling)
  Sender: FDA-Public Use
  Company Number: US-VISTAPHARM, INC.-VER201707-000217

PATIENT
  Age: 57 Year
  Sex: Female
  Weight: 57.6 kg

DRUGS (3)
  1. METHADONE HYDROCHLORIDE, USP [Suspect]
     Active Substance: METHADONE HYDROCHLORIDE
  2. METHADONE [Suspect]
     Active Substance: METHADONE HYDROCHLORIDE
  3. RELPAX [Suspect]
     Active Substance: ELETRIPTAN HYDROBROMIDE
     Indication: MIGRAINE

REACTIONS (3)
  - Malaise [Unknown]
  - Pneumonia [Unknown]
  - Coma [Unknown]
